FAERS Safety Report 24112147 (Version 1)
Quarter: 2024Q3

REPORT INFORMATION
  Report Type: Spontaneous
  Country: AT (occurrence: AT)
  Receive Date: 20240719
  Receipt Date: 20240719
  Transmission Date: 20241017
  Serious: Yes (Life-Threatening, Hospitalization, Other)
  Sender: NOVARTIS
  Company Number: None

PATIENT
  Age: 48 Year
  Sex: Female
  Weight: 56 kg

DRUGS (8)
  1. CYCLOSPORINE [Suspect]
     Active Substance: CYCLOSPORINE
     Indication: Product used for unknown indication
     Dosage: 1000 MG, Q12H (1-0-1)
     Route: 065
     Dates: start: 20240207
  2. CYCLOSPORINE [Suspect]
     Active Substance: CYCLOSPORINE
     Dosage: UNK
     Route: 065
     Dates: start: 20240118
  3. CEFEPIME HYDROCHLORIDE [Suspect]
     Active Substance: CEFEPIME HYDROCHLORIDE
     Indication: Product used for unknown indication
     Dosage: UNK
     Route: 065
     Dates: start: 20240425, end: 20240426
  4. METHOTREXATE SODIUM [Suspect]
     Active Substance: METHOTREXATE SODIUM
     Indication: Product used for unknown indication
     Route: 065
  5. METHOTREXATE SODIUM [Suspect]
     Active Substance: METHOTREXATE SODIUM
     Indication: Product used for unknown indication
     Dosage: METHOTREXAT GRY 15MG AD 2ML NACL 0,9% BOLUS, INTRATHEKAL
     Route: 037
     Dates: start: 20230707
  6. METHOTREXATE SODIUM [Suspect]
     Active Substance: METHOTREXATE SODIUM
     Dosage: METHOTREXAT GRY 15MG AD 2ML NACL 0,9% BOLUS, INTRATHEKAL
     Route: 037
     Dates: start: 20230812
  7. METHOTREXATE SODIUM [Suspect]
     Active Substance: METHOTREXATE SODIUM
     Dosage: METHOTREXAT GRY 15MG AD 3ML NACL 0,9% BOLUS, INTRATHEKAL
     Route: 037
     Dates: start: 20230913
  8. METHOTREXATE [Suspect]
     Active Substance: METHOTREXATE
     Indication: Product used for unknown indication
     Dosage: 3. NOVEMBER 2023: EBETREXAT 264,77MG (150MG/M?) AD 50ML GLUC 5%, KURZINFUSION3. NOVEMBER 2023: EBETR
     Route: 065
     Dates: start: 20231103

REACTIONS (2)
  - Neurotoxicity [Unknown]
  - Status epilepticus [Unknown]

NARRATIVE: CASE EVENT DATE: 20240426
